FAERS Safety Report 4329006-8 (Version None)
Quarter: 2004Q1

REPORT INFORMATION
  Report Type: 
  Country: None (occurrence: None)
  Receive Date: 20040329
  Receipt Date: 20031210
  Transmission Date: 20041129
  Serious: No
  Sender: FDA-Public Use
  Company Number: 03P-163-0244592-00

PATIENT
  Age: 88 Year
  Sex: Female
  Weight: 47.6277 kg

DRUGS (9)
  1. HUMIRA [Suspect]
     Indication: RHEUMATOID ARTHRITIS
     Dosage: 40 MG,. 1 IN 2 WK, SUBCUTANEOUS
     Route: 058
     Dates: start: 20030728
  2. NABUMETONE [Concomitant]
  3. LEFLUNOMIDE [Concomitant]
  4. IRBESARTAN [Concomitant]
  5. CLOPIDOGREL BISULFATE [Concomitant]
  6. ALENDRONATE SODIUM [Concomitant]
  7. IRBESARTAN [Concomitant]
  8. AMLODIPINE BESYLATE [Concomitant]
  9. FOLIC ACID [Concomitant]

REACTIONS (2)
  - INJECTION SITE PAIN [None]
  - PAIN IN EXTREMITY [None]
